FAERS Safety Report 25473748 (Version 3)
Quarter: 2025Q4

REPORT INFORMATION
  Report Type: Spontaneous
  Country: EU (occurrence: EU)
  Receive Date: 20250624
  Receipt Date: 20251223
  Transmission Date: 20260118
  Serious: Yes (Other)
  Sender: OTSUKA
  Company Number: EU-MMM-Otsuka-DZYOSNRM

PATIENT
  Sex: Female

DRUGS (2)
  1. ABILIFY [Suspect]
     Active Substance: ARIPIPRAZOLE
     Indication: Major depression
     Dosage: 30 MG
     Route: 061
  2. ABILIFY [Suspect]
     Active Substance: ARIPIPRAZOLE
     Dosage: 5 MG
     Route: 061

REACTIONS (3)
  - Optic nerve cupping [Recovering/Resolving]
  - Product use in unapproved indication [Not Recovered/Not Resolved]
  - Off label use [Unknown]
